FAERS Safety Report 23779957 (Version 1)
Quarter: 2024Q2

REPORT INFORMATION
  Report Type: Spontaneous
  Country: GT (occurrence: GT)
  Receive Date: 20240424
  Receipt Date: 20240424
  Transmission Date: 20240716
  Serious: Yes (Death, Other)
  Sender: FDA-Public Use
  Company Number: GT-PFIZER INC-PV202400053397

PATIENT
  Age: 76 Year
  Sex: Female

DRUGS (1)
  1. BOSUTINIB [Suspect]
     Active Substance: BOSUTINIB
     Indication: Chronic myeloid leukaemia
     Dosage: 2X100 MG TABLETS

REACTIONS (3)
  - Dyspnoea [Fatal]
  - Cellulitis [Fatal]
  - Pain in extremity [Unknown]

NARRATIVE: CASE EVENT DATE: 20240415
